FAERS Safety Report 4935822-1 (Version None)
Quarter: 2006Q1

REPORT INFORMATION
  Report Type: 
  Country: None (occurrence: None)
  Receive Date: 20060302
  Receipt Date: 20060214
  Transmission Date: 20060701
  Serious: Yes (Hospitalization)
  Sender: FDA-Public Use
  Company Number: US_0509122368

PATIENT
  Sex: Female
  Weight: 72.6 kg

DRUGS (12)
  1. ZYPREXA [Suspect]
     Indication: BIPOLAR DISORDER
     Dosage: SEE IMAGE
     Route: 048
     Dates: start: 19970101, end: 20040801
  2. ZYPREXA [Suspect]
     Indication: BIPOLAR DISORDER
     Dosage: SEE IMAGE
     Route: 048
     Dates: start: 20041109, end: 20050101
  3. ZOLOFT [Concomitant]
  4. VITAMIN B6 [Concomitant]
  5. UNISOM [Concomitant]
  6. LORTAB [Concomitant]
  7. FLEXERIL [Concomitant]
  8. PHENERGAN [Concomitant]
  9. IBUPROFEN [Concomitant]
  10. TRAMADOL HCL [Concomitant]
  11. DARVOCET-N 100 [Concomitant]
  12. AMBIEN [Concomitant]

REACTIONS (9)
  - DRUG EXPOSURE DURING PREGNANCY [None]
  - DRUG EXPOSURE VIA BREAST MILK [None]
  - FIBRONECTIN INCREASED [None]
  - GESTATIONAL DIABETES [None]
  - GLUCOSE TOLERANCE IMPAIRED [None]
  - HYPEREMESIS GRAVIDARUM [None]
  - HYPERGLYCAEMIA [None]
  - PREGNANCY [None]
  - PREMATURE LABOUR [None]
